FAERS Safety Report 9849903 (Version 1)
Quarter: 2014Q1

REPORT INFORMATION
  Report Type: Spontaneous
  Country: FR (occurrence: FR)
  Receive Date: 20140128
  Receipt Date: 20140128
  Transmission Date: 20141002
  Serious: Yes (Life-Threatening)
  Sender: FDA-Public Use
  Company Number: FR-PFIZER INC-2014019254

PATIENT
  Age: 60 Year
  Sex: Female

DRUGS (6)
  1. SALAZOPYRINE [Suspect]
     Dosage: 500 MG, UNK
     Route: 048
     Dates: start: 20130321, end: 201308
  2. ALDACTONE [Concomitant]
     Dosage: UNK
     Route: 048
  3. XALATAN [Concomitant]
     Dosage: UNK
     Route: 047
  4. KREDEX [Concomitant]
     Dosage: UNK
     Route: 048
  5. ATACAND [Concomitant]
     Dosage: UNK
     Route: 048
  6. KARDEGIC [Concomitant]
     Dosage: 75 MG, UNK
     Route: 048

REACTIONS (3)
  - Depression [Recovered/Resolved]
  - Suicidal ideation [Recovered/Resolved]
  - Crying [Recovered/Resolved]
